FAERS Safety Report 11110349 (Version 2)
Quarter: 2015Q2

REPORT INFORMATION
  Report Type: Spontaneous
  Country: US (occurrence: US)
  Receive Date: 20150513
  Receipt Date: 20150519
  Transmission Date: 20150821
  Serious: No
  Sender: FDA-Public Use
  Company Number: US-BAXTER-2015BAX025497

PATIENT
  Sex: Male

DRUGS (3)
  1. HUMALOG 25/75 [Concomitant]
     Route: 058
  2. DIANEAL LOW CALCIUM PERITONEAL DIALYSIS SOLUTION WITH DEXTROSE [Suspect]
     Active Substance: CALCIUM CHLORIDE\DEXTROSE\MAGNESIUM CHLORIDE\SODIUM CHLORIDE\SODIUM LACTATE
     Indication: CHRONIC KIDNEY DISEASE
     Route: 033
     Dates: start: 201203
  3. HUMALOG 25/75 [Concomitant]
     Indication: DIABETES MELLITUS
     Route: 058

REACTIONS (1)
  - Blood glucose abnormal [Recovering/Resolving]
